FAERS Safety Report 13414865 (Version 4)
Quarter: 2023Q4

REPORT INFORMATION
  Report Type: Spontaneous
  Country: US (occurrence: US)
  Receive Date: 20170406
  Receipt Date: 20231223
  Transmission Date: 20240110
  Serious: No
  Sender: FDA-Public Use
  Company Number: US-JNJFOC-20170319766

PATIENT
  Age: 21 Year
  Sex: Male

DRUGS (12)
  1. RISPERDAL [Suspect]
     Active Substance: RISPERIDONE
     Indication: Attention deficit hyperactivity disorder
     Route: 048
     Dates: start: 20070406, end: 20070731
  2. RISPERDAL [Suspect]
     Active Substance: RISPERIDONE
     Indication: Major depression
     Route: 048
     Dates: start: 20070602, end: 20070731
  3. RISPERDAL [Suspect]
     Active Substance: RISPERIDONE
     Dosage: EVERY NIGHT AT BED TIME
     Route: 048
     Dates: start: 20070801
  4. RISPERDAL [Suspect]
     Active Substance: RISPERIDONE
     Route: 048
     Dates: start: 20080130, end: 20080502
  5. RISPERDAL CONSTA [Suspect]
     Active Substance: RISPERIDONE
     Indication: Attention deficit hyperactivity disorder
     Route: 030
     Dates: start: 20080130, end: 20080502
  6. RISPERDAL CONSTA [Suspect]
     Active Substance: RISPERIDONE
     Indication: Major depression
  7. RISPERDAL CONSTA [Suspect]
     Active Substance: RISPERIDONE
  8. RISPERDAL CONSTA [Suspect]
     Active Substance: RISPERIDONE
  9. RISPERIDONE [Suspect]
     Active Substance: RISPERIDONE
     Indication: Attention deficit hyperactivity disorder
     Dosage: AT NIGHT
     Route: 048
     Dates: start: 20070430
  10. RISPERIDONE [Suspect]
     Active Substance: RISPERIDONE
     Indication: Major depression
  11. INVEGA [Suspect]
     Active Substance: PALIPERIDONE
     Indication: Attention deficit hyperactivity disorder
     Route: 048
     Dates: start: 20100922
  12. INVEGA [Suspect]
     Active Substance: PALIPERIDONE
     Indication: Major depression

REACTIONS (6)
  - Emotional distress [Unknown]
  - Decreased appetite [Unknown]
  - Weight increased [Unknown]
  - Gynaecomastia [Unknown]
  - Off label use [Unknown]
  - Product use in unapproved indication [Unknown]

NARRATIVE: CASE EVENT DATE: 20070406
